FAERS Safety Report 17361160 (Version 1)
Quarter: 2020Q1

REPORT INFORMATION
  Report Type: Spontaneous
  Country: UM (occurrence: UM)
  Receive Date: 20200117
  Receipt Date: 20200117
  Transmission Date: 20200409
  Serious: Yes (Other)
  Sender: FDA-Public Use
  Company Number: None

PATIENT
  Age: 75 Year
  Sex: Female
  Weight: 60 kg

DRUGS (1)
  1. ISOSULFAN BLUE INJECTION [Suspect]
     Active Substance: ISOSULFAN BLUE

REACTIONS (4)
  - Insomnia [None]
  - Urticaria [None]
  - Pruritus [None]
  - Skin discolouration [None]

NARRATIVE: CASE EVENT DATE: 201904
